FAERS Safety Report 25840553 (Version 2)
Quarter: 2025Q4

REPORT INFORMATION
  Report Type: Report from Study
  Country: US (occurrence: US)
  Receive Date: 20250924
  Receipt Date: 20251014
  Transmission Date: 20260118
  Serious: No
  Sender: MALLINCKRODT
  Company Number: US-MALLINCKRODT-MNK202505649

PATIENT
  Age: 35 Year
  Sex: Female
  Weight: 293 kg

DRUGS (1)
  1. CORTICOTROPIN [Suspect]
     Active Substance: CORTICOTROPIN
     Indication: Rheumatoid arthritis
     Dosage: 80 UNITS
     Route: 058
     Dates: start: 20250902

REACTIONS (5)
  - Pain [Unknown]
  - Injection site urticaria [Unknown]
  - Injection site erythema [Unknown]
  - Nasopharyngitis [Unknown]
  - Drug ineffective [Unknown]

NARRATIVE: CASE EVENT DATE: 20250101
